FAERS Safety Report 18855673 (Version 1)
Quarter: 2021Q1

REPORT INFORMATION
  Report Type: Spontaneous
  Country: JP (occurrence: JP)
  Receive Date: 20210205
  Receipt Date: 20210205
  Transmission Date: 20210420
  Serious: Yes (Other)
  Sender: FDA-Public Use
  Company Number: JP-NEUROCRINE BIOSCIENCES INC.-2020NBI04081

PATIENT
  Age: 81 Year
  Sex: Female

DRUGS (8)
  1. AMITIZA [Concomitant]
     Active Substance: LUBIPROSTONE
  2. EXELON [Concomitant]
     Active Substance: RIVASTIGMINE TARTRATE
     Dosage: UNKNOWN
     Route: 065
  3. YOKUKANSAN [Concomitant]
     Active Substance: HERBALS
  4. LUNESTA [Concomitant]
     Active Substance: ESZOPICLONE
  5. MENESIT [Concomitant]
     Active Substance: CARBIDOPA\LEVODOPA
  6. ONGENTYS [Suspect]
     Active Substance: OPICAPONE
     Indication: PARKINSON^S DISEASE
     Route: 048
     Dates: start: 20200912, end: 20200915
  7. ONGENTYS [Suspect]
     Active Substance: OPICAPONE
     Route: 048
     Dates: start: 20201007, end: 20201010
  8. DAIKENCHUTO [Concomitant]
     Active Substance: HERBALS

REACTIONS (3)
  - Dizziness [Recovering/Resolving]
  - Therapy cessation [Unknown]
  - Hallucination [Recovering/Resolving]

NARRATIVE: CASE EVENT DATE: 20200914
